FAERS Safety Report 4493388-7 (Version None)
Quarter: 2004Q4

REPORT INFORMATION
  Report Type: 
  Country: None (occurrence: None)
  Receive Date: 20041104
  Receipt Date: 20041018
  Transmission Date: 20050328
  Serious: Yes (Life-Threatening, Hospitalization)
  Sender: FDA-Public Use
  Company Number: US-MERCK-0410USA02610

PATIENT
  Age: 78 Year
  Sex: Female
  Weight: 34 kg

DRUGS (11)
  1. VIOXX [Suspect]
     Indication: RHEUMATOID ARTHRITIS
     Route: 048
     Dates: start: 20021014, end: 20040930
  2. ALDACTONE [Concomitant]
     Route: 065
  3. LASIX [Concomitant]
     Route: 065
  4. AMIODARONE [Concomitant]
     Route: 065
  5. LOPRESSOR [Concomitant]
     Route: 065
  6. NITROGLYCERIN [Concomitant]
     Route: 065
  7. MOTRIN [Concomitant]
     Route: 065
  8. TYLENOL [Concomitant]
     Route: 065
  9. PRINIVIL [Concomitant]
     Route: 048
  10. PROTONIX [Concomitant]
     Route: 065
  11. ASPIRIN [Concomitant]
     Route: 065

REACTIONS (2)
  - CARDIAC FAILURE CONGESTIVE [None]
  - GASTROOESOPHAGEAL REFLUX DISEASE [None]
